FAERS Safety Report 6852222-8 (Version None)
Quarter: 2010Q3

REPORT INFORMATION
  Report Type: 
  Country: None (occurrence: None)
  Receive Date: 20100717
  Receipt Date: 20080122
  Transmission Date: 20110219
  Serious: No
  Sender: FDA-Public Use
  Company Number: US-PFIZER INC-2007094920

PATIENT
  Sex: Male
  Weight: 79.5 kg

DRUGS (4)
  1. CHANTIX [Suspect]
     Indication: SMOKING CESSATION THERAPY
     Dates: start: 20071001
  2. EFFEXOR [Interacting]
  3. LISINOPRIL [Concomitant]
     Indication: HYPERTENSION
  4. ADDERALL 10 [Concomitant]

REACTIONS (5)
  - ABNORMAL DREAMS [None]
  - ANXIETY [None]
  - DRUG INTERACTION [None]
  - IRRITABILITY [None]
  - MOOD SWINGS [None]
